FAERS Safety Report 25125687 (Version 1)
Quarter: 2025Q1

REPORT INFORMATION
  Report Type: Spontaneous
  Country: DE (occurrence: DE)
  Receive Date: 20250326
  Receipt Date: 20250326
  Transmission Date: 20250408
  Serious: Yes (Other)
  Sender: MYLAN
  Company Number: DE-UCBSA-2025014201

PATIENT
  Age: 50 Year
  Sex: Female

DRUGS (20)
  1. LEVETIRACETAM [Suspect]
     Active Substance: LEVETIRACETAM
     Indication: Product used for unknown indication
  2. LEVETIRACETAM [Suspect]
     Active Substance: LEVETIRACETAM
  3. LEVETIRACETAM [Suspect]
     Active Substance: LEVETIRACETAM
     Route: 065
  4. LEVETIRACETAM [Suspect]
     Active Substance: LEVETIRACETAM
     Route: 065
  5. LEVETIRACETAM [Suspect]
     Active Substance: LEVETIRACETAM
     Dosage: 2000 MILLIGRAM, QD
     Dates: start: 2013
  6. LEVETIRACETAM [Suspect]
     Active Substance: LEVETIRACETAM
     Dosage: 2000 MILLIGRAM, QD
     Dates: start: 2013
  7. LEVETIRACETAM [Suspect]
     Active Substance: LEVETIRACETAM
     Dosage: 2000 MILLIGRAM, QD
     Route: 065
     Dates: start: 2013
  8. LEVETIRACETAM [Suspect]
     Active Substance: LEVETIRACETAM
     Dosage: 2000 MILLIGRAM, QD
     Route: 065
     Dates: start: 2013
  9. LACOSAMIDE [Suspect]
     Active Substance: LACOSAMIDE
     Indication: Product used for unknown indication
  10. LACOSAMIDE [Suspect]
     Active Substance: LACOSAMIDE
  11. LACOSAMIDE [Suspect]
     Active Substance: LACOSAMIDE
     Route: 065
  12. LACOSAMIDE [Suspect]
     Active Substance: LACOSAMIDE
     Route: 065
  13. LACOSAMIDE [Suspect]
     Active Substance: LACOSAMIDE
     Dosage: 400 MILLIGRAM, QD
     Dates: start: 2016
  14. LACOSAMIDE [Suspect]
     Active Substance: LACOSAMIDE
     Dosage: 400 MILLIGRAM, QD
     Dates: start: 2016
  15. LACOSAMIDE [Suspect]
     Active Substance: LACOSAMIDE
     Dosage: 400 MILLIGRAM, QD
     Route: 065
     Dates: start: 2016
  16. LACOSAMIDE [Suspect]
     Active Substance: LACOSAMIDE
     Dosage: 400 MILLIGRAM, QD
     Route: 065
     Dates: start: 2016
  17. LACOSAMIDE [Suspect]
     Active Substance: LACOSAMIDE
     Dosage: 250 MILLIGRAM, 2X/DAY (BID) (500 MG, QD)
  18. LACOSAMIDE [Suspect]
     Active Substance: LACOSAMIDE
     Dosage: 250 MILLIGRAM, 2X/DAY (BID) (500 MG, QD)
     Route: 065
  19. LACOSAMIDE [Suspect]
     Active Substance: LACOSAMIDE
     Dosage: 250 MILLIGRAM, 2X/DAY (BID) (500 MG, QD)
  20. LACOSAMIDE [Suspect]
     Active Substance: LACOSAMIDE
     Dosage: 250 MILLIGRAM, 2X/DAY (BID) (500 MG, QD)
     Route: 065

REACTIONS (4)
  - Epilepsy [Unknown]
  - Road traffic accident [Unknown]
  - Drug ineffective [Unknown]
  - Off label use [Unknown]

NARRATIVE: CASE EVENT DATE: 20210107
